FAERS Safety Report 4648283-7 (Version None)
Quarter: 2005Q2

REPORT INFORMATION
  Report Type: 
  Country: None (occurrence: None)
  Receive Date: 20050331
  Receipt Date: 20050113
  Transmission Date: 20051028
  Serious: No
  Sender: FDA-Public Use
  Company Number: 05P-163-0289095-00

PATIENT
  Age: 32 Year
  Sex: Female
  Weight: 55.3388 kg

DRUGS (8)
  1. HUMIRA [Suspect]
     Indication: RHEUMATOID ARTHRITIS
     Dosage: 40 MG, 1 IN 2 WK, SUBCUTANEOUS
     Route: 058
     Dates: start: 20040601, end: 20041101
  2. TYLENOL ALLERGY [Concomitant]
  3. GLUCOSAMINE [Concomitant]
  4. CONDROITIN [Concomitant]
  5. NORMENSAL [Concomitant]
  6. SALBUTAMOL [Concomitant]
  7. BUTALBITAL [Concomitant]
  8. CENTRUM [Concomitant]

REACTIONS (8)
  - BALANCE DISORDER [None]
  - BLEEDING TIME PROLONGED [None]
  - FALL [None]
  - INJECTION SITE ERYTHEMA [None]
  - PAIN IN EXTREMITY [None]
  - POLLAKIURIA [None]
  - TREMOR [None]
  - VOMITING [None]
